FAERS Safety Report 6218517-6 (Version None)
Quarter: 2009Q2

REPORT INFORMATION
  Report Type: 
  Country: None (occurrence: None)
  Receive Date: 20090608
  Receipt Date: 20090529
  Transmission Date: 20091009
  Serious: Yes (Other)
  Sender: FDA-Public Use
  Company Number: GB-JNJFOC-20090601532

PATIENT
  Sex: Male
  Weight: 63.5 kg

DRUGS (4)
  1. IBUPROFEN [Suspect]
     Indication: DRUG USE FOR UNKNOWN INDICATION
  2. SIMVASTATIN [Interacting]
     Indication: HYPERCHOLESTEROLAEMIA
     Route: 048
  3. ACETYSALICYLIC ACID [Concomitant]
     Indication: MYOCARDIAL ISCHAEMIA
     Route: 048
  4. PHOLCODINE [Concomitant]
     Indication: COUGH
     Route: 048

REACTIONS (2)
  - DRUG INTERACTION [None]
  - LOSS OF CONSCIOUSNESS [None]
